FAERS Safety Report 25075785 (Version 1)
Quarter: 2025Q1

REPORT INFORMATION
  Report Type: Spontaneous
  Country: US (occurrence: US)
  Receive Date: 20250313
  Receipt Date: 20250313
  Transmission Date: 20250408
  Serious: Yes (Other)
  Sender: BRISTOL-MYERS SQUIBB COMPANY
  Company Number: US-BRISTOL-MYERS SQUIBB COMPANY-2025-037099

PATIENT
  Age: 74 Year
  Sex: Male

DRUGS (2)
  1. ELIQUIS [Suspect]
     Active Substance: APIXABAN
     Indication: Product used for unknown indication
  2. VYNDAQEL [Suspect]
     Active Substance: TAFAMIDIS MEGLUMINE
     Indication: Product used for unknown indication
     Dosage: TAKE FOUR 20 MG CAPSULES BY MOUTH DAILY
     Route: 048

REACTIONS (5)
  - Dyspnoea [Unknown]
  - Joint swelling [Unknown]
  - Polyarthritis [Unknown]
  - Gait inability [Unknown]
  - Prostatic disorder [Unknown]
